FAERS Safety Report 5484743-7 (Version None)
Quarter: 2007Q4

REPORT INFORMATION
  Report Type: 
  Country: None (occurrence: None)
  Receive Date: 20071012
  Receipt Date: 20071004
  Transmission Date: 20080405
  Serious: Yes (Hospitalization)
  Sender: FDA-Public Use
  Company Number: FR-PFIZER INC-2007084492

PATIENT
  Age: 58 Year
  Sex: Female

DRUGS (4)
  1. TAHOR [Suspect]
  2. DEHYDROEPIANDROSTERONE [Suspect]
     Route: 048
  3. DESLORATADINE [Suspect]
     Route: 048
  4. ZOLPIDEM TARTRATE [Suspect]
     Route: 048

REACTIONS (1)
  - OPTIC NEUROPATHY [None]
